FAERS Safety Report 5650760-7 (Version None)
Quarter: 2008Q1

REPORT INFORMATION
  Report Type: 
  Country: None (occurrence: None)
  Receive Date: 20080305
  Receipt Date: 20080227
  Transmission Date: 20080703
  Serious: Yes (Other)
  Sender: FDA-Public Use
  Company Number: PHEH2008US02297

PATIENT
  Sex: Female

DRUGS (1)
  1. ENABLEX [Suspect]
     Indication: MICTURITION URGENCY
     Dosage: 7.5 MG , UNK
     Route: 048

REACTIONS (4)
  - CATARACT OPERATION [None]
  - DRUG INEFFECTIVE [None]
  - MICTURITION URGENCY [None]
  - VISUAL DISTURBANCE [None]
